FAERS Safety Report 4616899-X (Version None)
Quarter: 2005Q1

REPORT INFORMATION
  Report Type: 
  Country: None (occurrence: None)
  Receive Date: 20050321
  Receipt Date: 20050309
  Transmission Date: 20050727
  Serious: Yes (Other)
  Sender: FDA-Public Use
  Company Number: 2005043004

PATIENT
  Age: 14 Year
  Sex: Female
  Weight: 69 kg

DRUGS (3)
  1. NEURONTIN [Suspect]
     Indication: CONVULSION
     Dosage: 900 MG (300 MG, 3 IN 1 D), ORAL
     Route: 048
     Dates: end: 20050201
  2. GABAPENTIN [Suspect]
     Indication: CONVULSION
     Dosage: 900 MG (300 MG, 3 IN 1 D), ORAL
     Route: 048
     Dates: start: 20050201
  3. VALPROATE SODIUM [Concomitant]

REACTIONS (4)
  - AGGRESSION [None]
  - EYE DISORDER [None]
  - FEELING ABNORMAL [None]
  - SOCIAL AVOIDANT BEHAVIOUR [None]
